FAERS Safety Report 9391003 (Version 2)
Quarter: 2013Q4

REPORT INFORMATION
  Report Type: Spontaneous
  Country: IT (occurrence: IT)
  Receive Date: 20130709
  Receipt Date: 20131008
  Transmission Date: 20140711
  Serious: Yes (Other)
  Sender: FDA-Public Use
  Company Number: IT-JNJFOC-20130702360

PATIENT
  Age: 22 Year
  Sex: Male

DRUGS (1)
  1. PALEXIA COMPRESSE A RILASCIO PROLUNGATO [Suspect]
     Indication: PRODUCT USED FOR UNKNOWN INDICATION
     Route: 048
     Dates: start: 20130223, end: 20130223

REACTIONS (3)
  - Intentional overdose [Recovered/Resolved]
  - Substance abuse [Recovered/Resolved]
  - Stupor [Recovered/Resolved]
